FAERS Safety Report 5972437-0 (Version None)
Quarter: 2008Q4

REPORT INFORMATION
  Report Type: 
  Country: None (occurrence: None)
  Receive Date: 20081201
  Receipt Date: 20081030
  Transmission Date: 20090506
  Serious: No
  Sender: FDA-Public Use
  Company Number: US-BAYER-200837309NA

PATIENT
  Sex: Female

DRUGS (5)
  1. AVELOX [Suspect]
     Indication: ACUTE SINUSITIS
  2. SYNTHROID [Concomitant]
  3. CELEXA [Concomitant]
  4. MAGNESIUM SULFATE [Concomitant]
  5. ZETIA [Concomitant]

REACTIONS (1)
  - RASH [None]
